FAERS Safety Report 22614049 (Version 4)
Quarter: 2023Q4

REPORT INFORMATION
  Report Type: Spontaneous
  Country: US (occurrence: US)
  Receive Date: 20230619
  Receipt Date: 20231130
  Transmission Date: 20240109
  Serious: Yes (Hospitalization)
  Sender: FDA-Public Use
  Company Number: US-ELI_LILLY_AND_COMPANY-US202301002267

PATIENT
  Age: 45 Year
  Sex: Male

DRUGS (4)
  1. ADCIRCA [Suspect]
     Active Substance: TADALAFIL
     Indication: Pulmonary arterial hypertension
     Dosage: 40 MG, DAILY
     Route: 048
     Dates: start: 202212
  2. TYVASO [Suspect]
     Active Substance: TREPROSTINIL
     Indication: Pulmonary arterial hypertension
     Dosage: 7 BREATHS, QID
     Route: 055
     Dates: start: 202212
  3. TYVASO [Suspect]
     Active Substance: TREPROSTINIL
     Dosage: 10 BREATHS, QID
     Route: 055
     Dates: start: 202212
  4. TYVASO [Suspect]
     Active Substance: TREPROSTINIL
     Dosage: 13 BREATHS, QID
     Route: 055
     Dates: start: 202212

REACTIONS (15)
  - Platelet count decreased [Unknown]
  - Coccydynia [Unknown]
  - Neuralgia [Unknown]
  - Dry skin [Unknown]
  - Erythema [Unknown]
  - Burning sensation [Unknown]
  - Ear discomfort [Unknown]
  - Disturbance in attention [Unknown]
  - Somnolence [Unknown]
  - Diarrhoea [Unknown]
  - Dizziness [Unknown]
  - Headache [Unknown]
  - Fatigue [Unknown]
  - Hot flush [Unknown]
  - Flushing [Unknown]

NARRATIVE: CASE EVENT DATE: 20221201
